FAERS Safety Report 6457876-6 (Version None)
Quarter: 2009Q4

REPORT INFORMATION
  Report Type: 
  Country: None (occurrence: None)
  Receive Date: 20091125
  Receipt Date: 20091119
  Transmission Date: 20100525
  Serious: Yes (Other)
  Sender: FDA-Public Use
  Company Number: US-ABBOTT-09P-163-0609858-00

PATIENT
  Sex: Female

DRUGS (6)
  1. VICODIN [Suspect]
     Indication: BACK PAIN
     Dates: start: 20000101
  2. VICODIN [Suspect]
     Indication: NECK PAIN
  3. HYDROCODONE/ACETAMINOPHEN GENERIC [Suspect]
     Indication: DRUG USE FOR UNKNOWN INDICATION
  4. LIDOCAINE [Concomitant]
     Indication: DRUG USE FOR UNKNOWN INDICATION
     Dosage: PATCHES
  5. MULTIPLE OTHER UNKNOWN PAIN MEDICATIONS SINCE 2000 [Concomitant]
     Indication: DRUG USE FOR UNKNOWN INDICATION
     Dates: start: 20000101
  6. UNKNOWN EYE DROPS [Concomitant]
     Indication: DRUG USE FOR UNKNOWN INDICATION

REACTIONS (2)
  - EYE INFECTION [None]
  - RENAL FAILURE [None]
